FAERS Safety Report 7913023 (Version 2)
Quarter: 2014Q1

REPORT INFORMATION
  Report Type: Spontaneous
  Country: US (occurrence: US)
  Receive Date: 20110425
  Receipt Date: 20140130
  Transmission Date: 20141002
  Serious: Yes (Hospitalization, Other)
  Sender: FDA-Public Use
  Company Number: US-BAYER-2010-001672

PATIENT
  Age: 24 Year
  Sex: Female
  Weight: 60 kg

DRUGS (8)
  1. YASMIN [Suspect]
     Indication: CONTRACEPTION
  2. YAZ [Suspect]
     Indication: CONTRACEPTION
     Dosage: UNK
     Dates: start: 2002, end: 2007
  3. MULTIVITAMIN [Concomitant]
     Indication: SUPPLEMENTATION THERAPY
     Dosage: UNK UNK, QD
     Route: 048
     Dates: start: 200611
  4. FOLIC ACID [Concomitant]
     Dosage: UNK UNK, QD
     Route: 048
     Dates: start: 200611
  5. ADVIL [Concomitant]
     Dosage: UNK
     Dates: start: 2009, end: 2010
  6. MOTRIN [Concomitant]
     Dosage: UNK
     Dates: start: 2009, end: 2010
  7. CELEXA [Concomitant]
     Indication: DEPRESSION
     Dosage: UNK
     Dates: start: 200907
  8. TEA, GREEN [Concomitant]
     Dosage: UNK
     Dates: start: 200308, end: 2007

REACTIONS (3)
  - Cholelithiasis [None]
  - Gallbladder disorder [None]
  - Mental disorder [None]
